FAERS Safety Report 17049172 (Version 3)
Quarter: 2020Q1

REPORT INFORMATION
  Report Type: Spontaneous
  Country: PL (occurrence: PL)
  Receive Date: 20191119
  Receipt Date: 20200210
  Transmission Date: 20200409
  Serious: Yes (Other)
  Sender: FDA-Public Use
  Company Number: NVSC2019PL015131

PATIENT
  Age: 55 Year
  Sex: Female
  Weight: 130 kg

DRUGS (21)
  1. GEMCITABINE. [Suspect]
     Active Substance: GEMCITABINE
     Indication: METASTATIC NEOPLASM
     Route: 065
  2. CISPLATIN. [Suspect]
     Active Substance: CISPLATIN
     Indication: MALIGNANT NEOPLASM OF PLEURA
  3. PAZOPANIB [Suspect]
     Active Substance: PAZOPANIB
     Indication: METASTATIC NEOPLASM
     Dosage: 800 MG
     Route: 065
  4. GEMCITABINE. [Suspect]
     Active Substance: GEMCITABINE
     Indication: MALIGNANT NEOPLASM OF PLEURA
  5. DOCETAXEL. [Suspect]
     Active Substance: DOCETAXEL
     Indication: MALIGNANT NEOPLASM OF PLEURA
     Dosage: UNK
     Route: 042
  6. DOXIL [Suspect]
     Active Substance: DOXORUBICIN HYDROCHLORIDE
     Indication: METASTATIC NEOPLASM
     Dosage: 40 MG/M2, UNK
     Route: 065
  7. CISPLATIN. [Suspect]
     Active Substance: CISPLATIN
     Indication: MALIGNANT NEOPLASM OF PLEURA
     Dosage: 80 MG/M2 AT 21-DAY INTERVALS
     Route: 065
  8. DOXORUBICIN [Suspect]
     Active Substance: DOXORUBICIN
     Indication: MALIGNANT NEOPLASM OF PLEURA
     Dosage: 40 MG/M2 AT 21-DAY INTERVALS
     Route: 065
  9. DOCETAXEL. [Suspect]
     Active Substance: DOCETAXEL
     Indication: METASTATIC NEOPLASM
     Route: 065
  10. DOCETAXEL. [Suspect]
     Active Substance: DOCETAXEL
     Indication: MALIGNANT NEOPLASM OF PLEURA
  11. ENDOXAN [Suspect]
     Active Substance: CYCLOPHOSPHAMIDE
     Indication: METASTATIC NEOPLASM
     Route: 042
  12. CYCLOPHOSPHAMIDE. [Suspect]
     Active Substance: CYCLOPHOSPHAMIDE
     Indication: MALIGNANT NEOPLASM OF PLEURA
     Dosage: UNK
     Route: 065
  13. HOLOXAN [Suspect]
     Active Substance: IFOSFAMIDE
     Indication: METASTATIC NEOPLASM
     Dosage: UNK
     Route: 065
  14. CISPLATIN. [Suspect]
     Active Substance: CISPLATIN
     Indication: METASTATIC NEOPLASM
     Dosage: 80 MG/M2 AT 21-DAY INTERVALS
     Route: 065
  15. PAZOPANIB [Suspect]
     Active Substance: PAZOPANIB
     Indication: MALIGNANT NEOPLASM OF PLEURA
     Dosage: 800 MG, QD
     Route: 048
     Dates: start: 201611, end: 201711
  16. PAZOPANIB [Suspect]
     Active Substance: PAZOPANIB
     Indication: MALIGNANT NEOPLASM OF PLEURA
  17. GEMCITABINE. [Suspect]
     Active Substance: GEMCITABINE
     Indication: MALIGNANT NEOPLASM OF PLEURA
     Dosage: UNK
     Route: 065
  18. DACARBAZINE. [Suspect]
     Active Substance: DACARBAZINE
     Indication: METASTATIC NEOPLASM
     Route: 065
  19. ENDOXAN [Suspect]
     Active Substance: CYCLOPHOSPHAMIDE
     Indication: MALIGNANT NEOPLASM OF PLEURA
     Route: 065
  20. DACARBAZINE. [Suspect]
     Active Substance: DACARBAZINE
     Indication: MALIGNANT NEOPLASM OF PLEURA
     Dosage: UNK
     Route: 065
  21. DACARBAZINE. [Suspect]
     Active Substance: DACARBAZINE
     Indication: MALIGNANT NEOPLASM OF PLEURA

REACTIONS (8)
  - Metastases to thorax [Unknown]
  - Product use in unapproved indication [Unknown]
  - Malignant neoplasm of pleura [Unknown]
  - Metastases to liver [Unknown]
  - Drug ineffective [Unknown]
  - Metastases to abdominal cavity [Unknown]
  - Malignant neoplasm progression [Unknown]
  - Off label use [Unknown]

NARRATIVE: CASE EVENT DATE: 201711
